FAERS Safety Report 5291088-7 (Version None)
Quarter: 2007Q2

REPORT INFORMATION
  Report Type: 
  Country: None (occurrence: None)
  Receive Date: 20070402
  Receipt Date: 20070315
  Transmission Date: 20071010
  Serious: Yes (Other)
  Sender: FDA-Public Use
  Company Number: CHNY2007NL01360

PATIENT
  Age: 43 Year
  Sex: Male

DRUGS (2)
  1. NICOTINE [Suspect]
     Dosage: 30 TO 60 GUMS A DAY, SOMETIMES 100, CHEWED
     Dates: start: 20060901
  2. CLOZAPINE [Concomitant]

REACTIONS (3)
  - INTENTIONAL DRUG MISUSE [None]
  - NICOTINE DEPENDENCE [None]
  - OVERDOSE [None]
